FAERS Safety Report 6609017-X (Version None)
Quarter: 2010Q1

REPORT INFORMATION
  Report Type: 
  Country: None (occurrence: None)
  Receive Date: 20100301
  Receipt Date: 20100222
  Transmission Date: 20100710
  Serious: Yes (Hospitalization)
  Sender: FDA-Public Use
  Company Number: DE-GENENTECH-289173

PATIENT
  Sex: Female

DRUGS (7)
  1. RITUXIMAB [Suspect]
     Indication: RHEUMATOID ARTHRITIS
     Dosage: UNK
     Route: 065
     Dates: start: 20070418
  2. RITUXIMAB [Suspect]
     Dosage: UNK
     Dates: start: 20071203
  3. RITUXIMAB [Suspect]
     Dosage: UNK
     Dates: start: 20071217
  4. RITUXIMAB [Suspect]
     Dosage: UNK
     Dates: start: 20081101
  5. PARACETAMOL [Suspect]
     Indication: NASOPHARYNGITIS
     Dosage: UNK
     Route: 065
     Dates: start: 20081201, end: 20081201
  6. NOVALGIN [Concomitant]
     Indication: DRUG USE FOR UNKNOWN INDICATION
  7. PANTOPRAZOLE [Concomitant]
     Indication: DRUG USE FOR UNKNOWN INDICATION

REACTIONS (2)
  - CHOLESTASIS [None]
  - HEPATIC ENZYME INCREASED [None]
